FAERS Safety Report 12381171 (Version 2)
Quarter: 2016Q3

REPORT INFORMATION
  Report Type: Spontaneous
  Country: SE (occurrence: SE)
  Receive Date: 20160518
  Receipt Date: 20160830
  Transmission Date: 20161109
  Serious: Yes (Other)
  Sender: FDA-Public Use
  Company Number: SE-ROCHE-1759830

PATIENT
  Age: 57 Year
  Sex: Female

DRUGS (4)
  1. MABTHERA [Suspect]
     Active Substance: RITUXIMAB
     Dosage: TWO DOSES OF 500 MG WITH SAME BATCH
     Route: 042
     Dates: start: 20160115
  2. MABTHERA [Suspect]
     Active Substance: RITUXIMAB
     Indication: MULTIPLE SCLEROSIS
     Route: 042
     Dates: start: 20150122
  3. MABTHERA [Suspect]
     Active Substance: RITUXIMAB
     Dosage: TWO DOSES OF 500 MG WITH DIFFERENT BATCH NUMBER
     Route: 042
     Dates: start: 20160708
  4. MABTHERA [Suspect]
     Active Substance: RITUXIMAB
     Dosage: TWO DOSES OF 500 MG WITH SAME BATCH
     Route: 042
     Dates: start: 20150721

REACTIONS (1)
  - Psoriasis [Unknown]
